FAERS Safety Report 21361032 (Version 1)
Quarter: 2022Q3

REPORT INFORMATION
  Report Type: Report from Study
  Country: FR (occurrence: FR)
  Receive Date: 20220921
  Receipt Date: 20220921
  Transmission Date: 20221027
  Serious: Yes (Hospitalization, Other)
  Sender: FDA-Public Use
  Company Number: FR-ZOGENIX INTERNATIONAL LIMITED-ZX008-2021-00032

PATIENT
  Age: 19 Year
  Sex: Female
  Weight: 54.5 kg

DRUGS (28)
  1. FENFLURAMINE HYDROCHLORIDE [Suspect]
     Active Substance: FENFLURAMINE HYDROCHLORIDE
     Indication: Lennox-Gastaut syndrome
     Dosage: 0.6 MILLIGRAM PER KILOGRAM, DAILY DOSE; 30 MG/DAY (15 MG BID)
     Route: 048
     Dates: start: 20200721
  2. FENFLURAMINE HYDROCHLORIDE [Suspect]
     Active Substance: FENFLURAMINE HYDROCHLORIDE
     Indication: Severe myoclonic epilepsy of infancy
     Dosage: 25 MILLIGRAM, DAILY DOSE
     Route: 048
     Dates: start: 20210608, end: 20210705
  3. FENFLURAMINE HYDROCHLORIDE [Suspect]
     Active Substance: FENFLURAMINE HYDROCHLORIDE
     Dosage: TAPERED OFF TO 2 MILLILITRE, BID
     Route: 048
     Dates: start: 20210706, end: 20210706
  4. VALPROATE SODIUM [Concomitant]
     Active Substance: VALPROATE SODIUM
     Indication: Severe myoclonic epilepsy of infancy
     Dosage: 500 MILLIGRAM, QAM
     Route: 048
     Dates: start: 20190920, end: 20210530
  5. VALPROATE SODIUM [Concomitant]
     Active Substance: VALPROATE SODIUM
     Indication: Lennox-Gastaut syndrome
     Dosage: 750 MILLIGRAM, QPM
     Route: 048
     Dates: start: 20191018, end: 20210308
  6. VALPROATE SODIUM [Concomitant]
     Active Substance: VALPROATE SODIUM
     Dosage: 500 MILLIGRAM, QPM
     Route: 048
     Dates: start: 20210309, end: 20210709
  7. VALPROATE SODIUM [Concomitant]
     Active Substance: VALPROATE SODIUM
     Dosage: 400 MILLIGRAM, QAM
     Route: 048
     Dates: start: 20210628, end: 20210705
  8. VALPROATE SODIUM [Concomitant]
     Active Substance: VALPROATE SODIUM
     Dosage: 400 MILLIGRAM, QAM
     Route: 048
     Dates: start: 20210601, end: 20210705
  9. VALPROATE SODIUM [Concomitant]
     Active Substance: VALPROATE SODIUM
     Dosage: 250 MILLIGRAM, QAM
     Route: 048
     Dates: start: 20210706
  10. VALPROATE SODIUM [Concomitant]
     Active Substance: VALPROATE SODIUM
     Dosage: 500 MILLIGRAM, QPM
     Route: 048
     Dates: start: 20210709
  11. TEGRETOL [Concomitant]
     Active Substance: CARBAMAZEPINE
     Indication: Severe myoclonic epilepsy of infancy
     Dosage: 200 MILLIGRAM, QPM
     Route: 048
     Dates: start: 20090101
  12. TEGRETOL [Concomitant]
     Active Substance: CARBAMAZEPINE
     Indication: Lennox-Gastaut syndrome
     Dosage: 300 MILLIGRAM, QAM
     Route: 048
     Dates: start: 20090101, end: 20210628
  13. TEGRETOL [Concomitant]
     Active Substance: CARBAMAZEPINE
     Dosage: 200 MILLIGRAM, QAM
     Route: 048
     Dates: start: 20210629
  14. LAMICTAL [Concomitant]
     Active Substance: LAMOTRIGINE
     Indication: Severe myoclonic epilepsy of infancy
     Dosage: 100 MILLIGRAM, BID
     Route: 048
     Dates: start: 20130901
  15. LAMICTAL [Concomitant]
     Active Substance: LAMOTRIGINE
     Indication: Lennox-Gastaut syndrome
  16. CLOBAZAM [Concomitant]
     Active Substance: CLOBAZAM
     Indication: Severe myoclonic epilepsy of infancy
     Dosage: 10 MILLIGRAM, QPM
     Route: 048
     Dates: start: 20201013
  17. CLOBAZAM [Concomitant]
     Active Substance: CLOBAZAM
     Indication: Lennox-Gastaut syndrome
  18. EPIDIOLEX [Concomitant]
     Active Substance: CANNABIDIOL
     Indication: Severe myoclonic epilepsy of infancy
     Dosage: 300 MILLIGRAM, BID
     Route: 048
     Dates: start: 20210112, end: 20210627
  19. EPIDIOLEX [Concomitant]
     Active Substance: CANNABIDIOL
     Indication: Lennox-Gastaut syndrome
     Dosage: 250 MILLIGRAM, QAM
     Route: 048
     Dates: start: 20210628, end: 20210708
  20. EPIDIOLEX [Concomitant]
     Active Substance: CANNABIDIOL
     Dosage: 300 MILLIGRAM, QPM
     Route: 048
     Dates: start: 20210628, end: 20210708
  21. EPIDIOLEX [Concomitant]
     Active Substance: CANNABIDIOL
     Dosage: 200 MILLIGRAM, QAM
     Route: 048
     Dates: start: 20210709
  22. EPIDIOLEX [Concomitant]
     Active Substance: CANNABIDIOL
     Dosage: 200 MILLIGRAM, QPM
     Route: 048
     Dates: start: 20210709
  23. TOPIRAMATE [Concomitant]
     Active Substance: TOPIRAMATE
     Indication: Severe myoclonic epilepsy of infancy
     Dosage: 100 MILLIGRAM, QAM
     Route: 048
     Dates: start: 20130901, end: 20210413
  24. TOPIRAMATE [Concomitant]
     Active Substance: TOPIRAMATE
     Indication: Lennox-Gastaut syndrome
     Dosage: 100 MILLIGRAM, QPM
     Route: 048
     Dates: start: 20130901, end: 20210627
  25. TOPIRAMATE [Concomitant]
     Active Substance: TOPIRAMATE
     Dosage: 100 MILLIGRAM, QPM
     Route: 048
     Dates: start: 20210414, end: 20210628
  26. TOPIRAMATE [Concomitant]
     Active Substance: TOPIRAMATE
     Dosage: 75 MILLIGRAM, QAM
     Route: 048
     Dates: start: 20210414
  27. TOPIRAMATE [Concomitant]
     Active Substance: TOPIRAMATE
     Dosage: 75 MILLIGRAM, QPM
     Route: 048
     Dates: start: 20210628, end: 20210704
  28. TOPIRAMATE [Concomitant]
     Active Substance: TOPIRAMATE
     Dosage: 50 MILLIGRAM, QPM
     Route: 048
     Dates: start: 20210705

REACTIONS (5)
  - Gait disturbance [Recovered/Resolved]
  - Tremor [Recovered/Resolved]
  - Asthenia [Recovered/Resolved]
  - Weight decreased [Recovered/Resolved]
  - Somnolence [Recovered/Resolved]

NARRATIVE: CASE EVENT DATE: 20210705
